FAERS Safety Report 21727610 (Version 1)
Quarter: 2022Q4

REPORT INFORMATION
  Report Type: Spontaneous
  Country: US (occurrence: None)
  Receive Date: 20221213
  Receipt Date: 20221213
  Transmission Date: 20230113
  Serious: No
  Sender: FDA-Public Use
  Company Number: None

PATIENT
  Age: 22 Year
  Sex: Female
  Weight: 87.75 kg

DRUGS (3)
  1. RINVOQ [Suspect]
     Active Substance: UPADACITINIB
     Indication: Dermatitis atopic
     Dosage: FREQUENCY : DAILY;?
     Route: 048
     Dates: start: 20220912, end: 20221010
  2. RINVOQ [Suspect]
     Active Substance: UPADACITINIB
     Indication: Eczema
  3. Dupixent (current, not while taking the prescribed Rinvoq) [Concomitant]

REACTIONS (2)
  - Heavy menstrual bleeding [None]
  - Intermenstrual bleeding [None]
